FAERS Safety Report 9724015 (Version 1)
Quarter: 2013Q4

REPORT INFORMATION
  Report Type: Spontaneous
  Country: US (occurrence: US)
  Receive Date: 20131202
  Receipt Date: 20131202
  Transmission Date: 20140711
  Serious: No
  Sender: FDA-Public Use
  Company Number: US-AMGEN-USASP2013077962

PATIENT
  Age: 68 Year
  Sex: Female

DRUGS (2)
  1. ENBREL [Suspect]
     Indication: PSORIASIS
     Dosage: 25 MG, 3 TIMES/WK
     Route: 065
     Dates: start: 20001101
  2. ENBREL [Suspect]
     Indication: PSORIATIC ARTHROPATHY

REACTIONS (5)
  - Skin plaque [Recovering/Resolving]
  - Skin hypertrophy [Recovering/Resolving]
  - Pain in extremity [Recovered/Resolved]
  - Back pain [Recovered/Resolved]
  - Joint crepitation [Recovered/Resolved]
